FAERS Safety Report 23057682 (Version 1)
Quarter: 2023Q4

REPORT INFORMATION
  Report Type: Spontaneous
  Country: US (occurrence: US)
  Receive Date: 20231012
  Receipt Date: 20231012
  Transmission Date: 20240109
  Serious: No
  Sender: FDA-Public Use
  Company Number: US-ELI_LILLY_AND_COMPANY-US202310005271

PATIENT
  Sex: Female

DRUGS (5)
  1. HUMALOG [Suspect]
     Active Substance: INSULIN LISPRO
     Indication: Type 2 diabetes mellitus
     Dosage: 20 U, UNKNOWN
     Route: 065
  2. CORTISONE [Suspect]
     Active Substance: CORTISONE
     Indication: Back pain
     Dosage: UNK, UNKNOWN
     Route: 065
     Dates: start: 202302
  3. CORTISONE [Suspect]
     Active Substance: CORTISONE
     Indication: Nerve injury
  4. NATEGLINIDE [Concomitant]
     Active Substance: NATEGLINIDE
     Indication: Type 2 diabetes mellitus
  5. METFORMIN [Concomitant]
     Active Substance: METFORMIN HYDROCHLORIDE
     Indication: Type 2 diabetes mellitus

REACTIONS (2)
  - Blood glucose fluctuation [Unknown]
  - Blood glucose decreased [Unknown]
